FAERS Safety Report 8376009-2 (Version None)
Quarter: 2012Q2

REPORT INFORMATION
  Report Type: 
  Country: None (occurrence: None)
  Receive Date: 20120522
  Receipt Date: 20120515
  Transmission Date: 20120825
  Serious: Yes (Hospitalization)
  Sender: FDA-Public Use
  Company Number: PHHY2012JP027505

PATIENT
  Sex: Female

DRUGS (5)
  1. SIMULECT [Suspect]
     Indication: RENAL AND PANCREAS TRANSPLANT
     Dosage: 20 MG, UNK
     Route: 042
     Dates: start: 20110401, end: 20110401
  2. CELLCEPT [Concomitant]
     Indication: RENAL AND PANCREAS TRANSPLANT
     Dosage: 1.5 MG, UNK
     Route: 048
     Dates: start: 20110417
  3. TACROLIMUS [Concomitant]
     Indication: RENAL AND PANCREAS TRANSPLANT
     Dates: start: 20110401
  4. PROGRAF [Concomitant]
     Indication: RENAL AND PANCREAS TRANSPLANT
     Dosage: 2.5 MG, UNK
     Route: 048
     Dates: start: 20110417
  5. PREDNISOLONE [Concomitant]
     Indication: RENAL AND PANCREAS TRANSPLANT
     Dosage: 50 MG, UNK
     Route: 048
     Dates: start: 20110417

REACTIONS (7)
  - PANCREATIC LEAK [None]
  - KIDNEY FIBROSIS [None]
  - URINARY ANASTOMOTIC LEAK [None]
  - RENAL ATROPHY [None]
  - COMPLICATIONS OF TRANSPLANTED KIDNEY [None]
  - RENAL AND PANCREAS TRANSPLANT REJECTION [None]
  - CYTOMEGALOVIRUS INFECTION [None]
